FAERS Safety Report 6232207-5 (Version None)
Quarter: 2009Q2

REPORT INFORMATION
  Report Type: 
  Country: None (occurrence: None)
  Receive Date: 20090616
  Receipt Date: 20090616
  Transmission Date: 20091009
  Serious: Yes (Other)
  Sender: FDA-Public Use
  Company Number: None

PATIENT
  Sex: Female
  Weight: 63.5036 kg

DRUGS (4)
  1. METOCLOPRAMIDE [Suspect]
     Indication: GASTROOESOPHAGEAL REFLUX DISEASE
     Dosage: 10 MG 4 TIMES A DAY PO
     Route: 048
     Dates: start: 20080801, end: 20081214
  2. WELLBUTRIN [Concomitant]
  3. HYDROCHLOROTHIAZIDE [Concomitant]
  4. PRILOSEC [Concomitant]

REACTIONS (4)
  - AKATHISIA [None]
  - ANHEDONIA [None]
  - ANXIETY [None]
  - MEDICATION ERROR [None]
